FAERS Safety Report 8442934-7 (Version None)
Quarter: 2012Q2

REPORT INFORMATION
  Report Type: 
  Country: None (occurrence: None)
  Receive Date: 20120615
  Receipt Date: 20120531
  Transmission Date: 20120825
  Serious: No
  Sender: FDA-Public Use
  Company Number: US-ASTRAZENECA-2012SE36750

PATIENT
  Age: 52 Year
  Sex: Female

DRUGS (1)
  1. CRESTOR [Suspect]
     Route: 048

REACTIONS (6)
  - WEIGHT INCREASED [None]
  - NAUSEA [None]
  - FATIGUE [None]
  - OEDEMA PERIPHERAL [None]
  - MALAISE [None]
  - INFLUENZA LIKE ILLNESS [None]
